FAERS Safety Report 9026307 (Version 1)
Quarter: 2012Q4

REPORT INFORMATION
  Report Type: Spontaneous
  Country: US (occurrence: None)
  Receive Date: 20121214
  Receipt Date: 20121214
  Transmission Date: 20130627
  Serious: Yes (Life-Threatening, Hospitalization, Other)
  Sender: FDA-Public Use
  Company Number: None

PATIENT

DRUGS (2)
  1. VANCOMYCIN [Suspect]
     Route: 042
     Dates: start: 20111123, end: 20111126
  2. VANCOMYCIN [Suspect]
     Route: 042
     Dates: start: 20111127, end: 20111215

REACTIONS (1)
  - Renal failure acute [None]
